FAERS Safety Report 25091739 (Version 1)
Quarter: 2025Q1

REPORT INFORMATION
  Report Type: Spontaneous
  Country: US (occurrence: US)
  Receive Date: 20250318
  Receipt Date: 20250318
  Transmission Date: 20250409
  Serious: No
  Sender: SANOFI AVENTIS
  Company Number: US-SA-2025SA077610

PATIENT
  Age: 3 Year
  Sex: Male

DRUGS (3)
  1. DUPIXENT [Suspect]
     Active Substance: DUPILUMAB
     Indication: Eczema
     Dosage: 200 MG
     Route: 058
     Dates: start: 20250117
  2. HYDROCORTISONE [Concomitant]
     Active Substance: HYDROCORTISONE
  3. MUPIROCIN [Concomitant]
     Active Substance: MUPIROCIN

REACTIONS (4)
  - Eczema [Unknown]
  - Insomnia [Unknown]
  - Condition aggravated [Unknown]
  - Pruritus [Unknown]
